FAERS Safety Report 24847834 (Version 2)
Quarter: 2025Q1

REPORT INFORMATION
  Report Type: Report from Study
  Country: US (occurrence: US)
  Receive Date: 20250116
  Receipt Date: 20250119
  Transmission Date: 20250408
  Serious: Yes (Hospitalization)
  Sender: ABBVIE
  Company Number: US-ABBVIE-6081820

PATIENT
  Age: 89 Year
  Sex: Female
  Weight: 69.3 kg

DRUGS (2)
  1. RESTASIS [Suspect]
     Active Substance: CYCLOSPORINE
     Indication: Dry eye
     Dosage: 1 DROP IN EACH EYE
     Route: 047
     Dates: start: 2023, end: 202411
  2. RESTASIS [Suspect]
     Active Substance: CYCLOSPORINE
     Indication: Glaucoma

REACTIONS (3)
  - Osteoarthritis [Recovering/Resolving]
  - Pericardial effusion [Recovering/Resolving]
  - Peripheral swelling [Recovering/Resolving]

NARRATIVE: CASE EVENT DATE: 20241101
